FAERS Safety Report 11923859 (Version 2)
Quarter: 2016Q1

REPORT INFORMATION
  Report Type: Spontaneous
  Country: US (occurrence: US)
  Receive Date: 20160118
  Receipt Date: 20160213
  Transmission Date: 20160526
  Serious: No
  Sender: FDA-Public Use
  Company Number: US-TEVA-624338ACC

PATIENT
  Age: 17 Year
  Sex: Female
  Weight: 61.29 kg

DRUGS (1)
  1. PLAN B ONE-STEP [Suspect]
     Active Substance: LEVONORGESTREL
     Indication: POST COITAL CONTRACEPTION
     Dates: start: 20151129, end: 20151129

REACTIONS (4)
  - Abdominal pain [Recovered/Resolved]
  - Menstruation delayed [Recovered/Resolved]
  - Vaginal haemorrhage [Recovered/Resolved]
  - Back pain [Recovered/Resolved]

NARRATIVE: CASE EVENT DATE: 20151130
